FAERS Safety Report 19960880 (Version 1)
Quarter: 2021Q4

REPORT INFORMATION
  Report Type: Spontaneous
  Country: CA (occurrence: CA)
  Receive Date: 20211016
  Receipt Date: 20211016
  Transmission Date: 20220303
  Serious: Yes (Other)
  Sender: FDA-Public Use
  Company Number: CA-ROCHE-2931341

PATIENT
  Age: 62 Year
  Sex: Male

DRUGS (1)
  1. OCREVUS [Suspect]
     Active Substance: OCRELIZUMAB
     Indication: Multiple sclerosis
     Dosage: FORMULATION 30MG/ML
     Route: 042
     Dates: start: 20180820

REACTIONS (1)
  - Trigeminal nerve disorder [Not Recovered/Not Resolved]

NARRATIVE: CASE EVENT DATE: 20211006
